FAERS Safety Report 24686111 (Version 1)
Quarter: 2024Q4

REPORT INFORMATION
  Report Type: Spontaneous
  Country: US (occurrence: None)
  Receive Date: 20241201
  Receipt Date: 20241201
  Transmission Date: 20250115
  Serious: Yes (Hospitalization)
  Sender: Public
  Company Number: None

PATIENT
  Sex: Female

DRUGS (16)
  1. TERIFLUNOMIDE [Suspect]
     Active Substance: TERIFLUNOMIDE
     Indication: Multiple sclerosis
     Dosage: FREQUENCY : DAILY;?
     Dates: start: 20230406
  2. AMPHET/DEXTR CAP 20MG ER [Concomitant]
  3. AUBAGIO [Concomitant]
     Active Substance: TERIFLUNOMIDE
  4. BOTOX INJ 100UNIT [Concomitant]
  5. BUPROPION TAB 150MG XL [Concomitant]
  6. DULOXETINE CAP 60MG [Concomitant]
  7. GABAPENTIN CAP 400MG [Concomitant]
  8. HYDROCO/APAP TAB 7.5-325 [Concomitant]
  9. IBUPROFEN [Concomitant]
     Active Substance: IBUPROFEN
  10. OMEPRAZOLE TAB 20MG [Concomitant]
  11. TRAZODONE [Concomitant]
     Active Substance: TRAZODONE HYDROCHLORIDE
  12. MIRABEGRON TAB 50MG ER, [Concomitant]
  13. MYRBETRIO TAB 50MG [Concomitant]
  14. BUPROPION TAB 300MG XL [Concomitant]
  15. DESVENLAFAX TAB 50MG ER [Concomitant]
  16. WEGOVY 2.4MG/DOSE [Concomitant]

REACTIONS (2)
  - Therapy interrupted [None]
  - Hospitalisation [None]
